FAERS Safety Report 6969552-1 (Version None)
Quarter: 2010Q3

REPORT INFORMATION
  Report Type: 
  Country: None (occurrence: None)
  Receive Date: 20100907
  Receipt Date: 20100907
  Transmission Date: 20110219
  Serious: Yes (Disabling)
  Sender: FDA-Public Use
  Company Number: None

PATIENT
  Age: 60 Year
  Sex: Female
  Weight: 86.637 kg

DRUGS (2)
  1. CLONAZEPAM [Suspect]
     Indication: BIPOLAR I DISORDER
     Dosage: 0.5 X2 PER DAY PO
     Route: 048
     Dates: start: 20100821, end: 20100828
  2. VENLAFAXINE [Suspect]
     Indication: BIPOLAR I DISORDER
     Dosage: 150 MG X2 PER DAY PO
     Route: 048
     Dates: start: 20100308, end: 20100828

REACTIONS (9)
  - BLISTER [None]
  - COUGH [None]
  - DRY SKIN [None]
  - DYSPNOEA [None]
  - ERYTHEMA [None]
  - PHARYNGEAL OEDEMA [None]
  - PRODUCT SUBSTITUTION ISSUE [None]
  - RASH [None]
  - SKIN IRRITATION [None]
